FAERS Safety Report 22072675 (Version 1)
Quarter: 2023Q1

REPORT INFORMATION
  Report Type: Spontaneous
  Country: CA (occurrence: CA)
  Receive Date: 20230308
  Receipt Date: 20230308
  Transmission Date: 20230418
  Serious: Yes (Other)
  Sender: FDA-Public Use
  Company Number: CA-GLAXOSMITHKLINE-CA2023AMR033829

PATIENT

DRUGS (3)
  1. VALACYCLOVIR [Suspect]
     Active Substance: VALACYCLOVIR HYDROCHLORIDE
     Indication: Retinitis viral
     Dosage: 2 G, TID
     Route: 048
  2. DIFLUPREDNATE [Suspect]
     Active Substance: DIFLUPREDNATE
     Indication: Retinitis viral
     Dosage: UNK UNK, QID
     Route: 065
  3. GANCICLOVIR [Suspect]
     Active Substance: GANCICLOVIR
     Indication: Retinitis viral
     Dosage: 2 G, Z (1 EVERY 2 WEEKS)
     Route: 031

REACTIONS (3)
  - Retinitis viral [Unknown]
  - Disease progression [Unknown]
  - Product use in unapproved indication [Unknown]
